FAERS Safety Report 9956786 (Version 1)
Quarter: 2014Q1

REPORT INFORMATION
  Report Type: Report from Study
  Country: US (occurrence: US)
  Receive Date: 20140304
  Receipt Date: 20140304
  Transmission Date: 20141002
  Serious: No
  Sender: FDA-Public Use
  Company Number: US-ABBVIE-13P-163-1097068-00

PATIENT
  Age: 18 Year
  Sex: Male

DRUGS (5)
  1. HUMIRA [Suspect]
     Indication: CROHN^S DISEASE
     Dates: start: 20130528
  2. PENTASA [Concomitant]
     Indication: CROHN^S DISEASE
     Dosage: 8 PILLS DAILY
  3. PREDNISONE [Concomitant]
     Indication: CROHN^S DISEASE
  4. PREVACID [Concomitant]
     Indication: CROHN^S DISEASE
  5. IRON [Concomitant]
     Indication: BLOOD IRON DECREASED

REACTIONS (1)
  - Injection site mass [Recovered/Resolved]
